FAERS Safety Report 10166682 (Version 1)
Quarter: 2014Q2

REPORT INFORMATION
  Report Type: Report from Study
  Country: GB (occurrence: GB)
  Receive Date: 20140512
  Receipt Date: 20140512
  Transmission Date: 20141212
  Serious: Yes (Life-Threatening, Hospitalization)
  Sender: FDA-Public Use
  Company Number: GB-SA-2014SA056428

PATIENT
  Age: 63 Year
  Sex: Male

DRUGS (17)
  1. DOCETAXEL [Suspect]
     Indication: PROSTATE CANCER
     Dosage: 60 MG/M2 EVERY 21 DAYS
     Route: 042
     Dates: start: 20140212
  2. CASODEX [Suspect]
     Indication: PROSTATE CANCER
     Route: 048
     Dates: start: 20140210
  3. LUPRON [Suspect]
     Indication: PROSTATE CANCER
     Dosage: FREQUENCY REPORTED AS EVERY 3 MONTHS
     Route: 058
     Dates: start: 20140212
  4. METFORMIN [Concomitant]
  5. NIFEDIPINE [Concomitant]
  6. AMITRIPTYLINE [Concomitant]
  7. SILDENAFIL [Concomitant]
  8. TIMOLOL [Concomitant]
  9. MAGNESIUM OXIDE [Concomitant]
  10. DOCUSATE [Concomitant]
  11. PSYLLIUM [Concomitant]
  12. ZOLPIDEM TARTRATE [Concomitant]
  13. CYCLOBENZAPRINE [Concomitant]
  14. FLUNISOLIDE [Concomitant]
  15. TYLENOL [Concomitant]
  16. ASPIRIN [Concomitant]
  17. MENTHOL [Concomitant]

REACTIONS (1)
  - Hyperglycaemia [Recovered/Resolved]
